FAERS Safety Report 9729438 (Version 2)
Quarter: 2015Q3

REPORT INFORMATION
  Report Type: Spontaneous
  Country: US (occurrence: US)
  Receive Date: 20131204
  Receipt Date: 20150804
  Transmission Date: 20151125
  Serious: No
  Sender: FDA-Public Use
  Company Number: US-GILEAD-2009-0021334

PATIENT
  Age: 78 Year
  Sex: Male
  Weight: 79.38 kg

DRUGS (7)
  1. LETAIRIS [Suspect]
     Active Substance: AMBRISENTAN
     Indication: PULMONARY ARTERIAL HYPERTENSION
     Route: 048
     Dates: start: 20090313
  2. CRESTOR [Concomitant]
     Active Substance: ROSUVASTATIN CALCIUM
  3. WARFARIN [Concomitant]
     Active Substance: WARFARIN
  4. TRICOR [Concomitant]
     Active Substance: FENOFIBRATE
  5. COREG [Concomitant]
     Active Substance: CARVEDILOL
  6. AVODART [Concomitant]
     Active Substance: DUTASTERIDE
  7. FLOMAX [Concomitant]
     Active Substance: TAMSULOSIN HYDROCHLORIDE

REACTIONS (1)
  - Pruritus [Unknown]
